FAERS Safety Report 16280994 (Version 1)
Quarter: 2019Q2

REPORT INFORMATION
  Report Type: Spontaneous
  Country: US (occurrence: US)
  Receive Date: 20190507
  Receipt Date: 20190507
  Transmission Date: 20190711
  Serious: Yes (Other)
  Sender: FDA-Public Use
  Company Number: US-JNJFOC-20190503992

PATIENT
  Age: 68 Year
  Sex: Female

DRUGS (1)
  1. INVOKANA [Suspect]
     Active Substance: CANAGLIFLOZIN
     Indication: DIABETES MELLITUS
     Route: 048
     Dates: start: 20140107

REACTIONS (6)
  - Foot fracture [Unknown]
  - Osteomyelitis [Unknown]
  - Abscess limb [Unknown]
  - Impaired healing [Unknown]
  - Arthritis bacterial [Unknown]
  - Limb amputation [Unknown]

NARRATIVE: CASE EVENT DATE: 2016
